FAERS Safety Report 20096252 (Version 1)
Quarter: 2021Q4

REPORT INFORMATION
  Report Type: Spontaneous
  Country: US (occurrence: None)
  Receive Date: 20211120
  Receipt Date: 20211120
  Transmission Date: 20220304
  Serious: Yes (Hospitalization)
  Sender: FDA-Public Use
  Company Number: None

PATIENT
  Age: 73 Year
  Sex: Male
  Weight: 108 kg

DRUGS (3)
  1. CAPECITABINE [Suspect]
     Active Substance: CAPECITABINE
     Indication: Pancreatic carcinoma
     Dosage: FREQUENCY : TWICE A DAY;?
     Route: 048
     Dates: start: 20210901
  2. TEMOZOLOMIDE [Suspect]
     Active Substance: TEMOZOLOMIDE
     Indication: Pancreatic carcinoma
     Dosage: FREQUENCY : DAILY;?
     Route: 048
     Dates: start: 20210901
  3. OCTREOTIDE ACETATE [Concomitant]
     Active Substance: OCTREOTIDE ACETATE

REACTIONS (1)
  - Gastrointestinal infection [None]

NARRATIVE: CASE EVENT DATE: 20211025
